FAERS Safety Report 16251662 (Version 1)
Quarter: 2019Q2

REPORT INFORMATION
  Report Type: Spontaneous
  Country: US (occurrence: US)
  Receive Date: 20190427
  Receipt Date: 20190427
  Transmission Date: 20190711
  Serious: No
  Sender: FDA-Public Use
  Company Number: None

PATIENT
  Age: 72 Year
  Sex: Female
  Weight: 73.8 kg

DRUGS (5)
  1. TURMERIC WITH GINGER [Concomitant]
  2. CALCIUM WITH VITAMIN D [Concomitant]
     Active Substance: CALCIUM\VITAMIN D
  3. SUPREP BOWEL PREP [Suspect]
     Active Substance: MAGNESIUM SULFATE\POTASSIUM SULFATE\SODIUM SULFATE
     Indication: COLONOSCOPY
     Dosage: ?          QUANTITY:6 OUNCE(S);OTHER FREQUENCY:2 DOSES, 11HRS APA;?
     Route: 048
     Dates: start: 20190415, end: 20190416
  4. LIONS MANE [Concomitant]
  5. GLUCOSAMINE [Concomitant]
     Active Substance: GLUCOSAMINE

REACTIONS (4)
  - Dizziness [None]
  - Dyspnoea [None]
  - Cold sweat [None]
  - Nausea [None]

NARRATIVE: CASE EVENT DATE: 20190416
